FAERS Safety Report 10057448 (Version 2)
Quarter: 2014Q2

REPORT INFORMATION
  Report Type: Report from Study
  Country: US (occurrence: US)
  Receive Date: 20140403
  Receipt Date: 20140403
  Transmission Date: 20141212
  Serious: Yes (Other)
  Sender: FDA-Public Use
  Company Number: PHEH2013US014841

PATIENT
  Age: 32 Year
  Sex: Male

DRUGS (1)
  1. TOBI PODHALER [Suspect]
     Indication: INFECTIVE PULMONARY EXACERBATION OF CYSTIC FIBROSIS
     Dosage: 112 MG, BID
     Route: 055
     Dates: start: 20130607

REACTIONS (4)
  - Pneumonia [Unknown]
  - Pyrexia [Unknown]
  - Respiratory tract congestion [Not Recovered/Not Resolved]
  - Headache [Unknown]
